FAERS Safety Report 9790543 (Version 1)
Quarter: 2013Q4

REPORT INFORMATION
  Report Type: Spontaneous
  Country: TR (occurrence: TR)
  Receive Date: 20131231
  Receipt Date: 20131231
  Transmission Date: 20140711
  Serious: Yes (Death, Other)
  Sender: FDA-Public Use
  Company Number: TR-PFIZER INC-2013371565

PATIENT
  Sex: 0

DRUGS (1)
  1. CARDURA XL [Suspect]
     Dosage: UNK

REACTIONS (3)
  - Death [Fatal]
  - Syncope [Unknown]
  - Head injury [Unknown]
